FAERS Safety Report 8833901 (Version 2)
Quarter: 2013Q1

REPORT INFORMATION
  Report Type: Spontaneous
  Country: US (occurrence: US)
  Receive Date: 20121010
  Receipt Date: 20130115
  Transmission Date: 20140127
  Serious: No
  Sender: FDA-Public Use
  Company Number: US-009507513-1209USA002315

PATIENT
  Age: 70 Year
  Sex: Female

DRUGS (1)
  1. AZASITE [Suspect]
     Indication: EYE INFECTION
     Dosage: 2 DROP, BID
     Route: 047
     Dates: start: 20120824

REACTIONS (4)
  - Product packaging quantity issue [Unknown]
  - Product dropper issue [Unknown]
  - Drug dose omission [Unknown]
  - No adverse event [Unknown]
